FAERS Safety Report 10933254 (Version 1)
Quarter: 2015Q1

REPORT INFORMATION
  Report Type: Report from Study
  Country: US (occurrence: US)
  Receive Date: 20150320
  Receipt Date: 20150320
  Transmission Date: 20150721
  Serious: Yes (Death)
  Sender: FDA-Public Use
  Company Number: US-BAXTER-2015BAX014018

PATIENT

DRUGS (8)
  1. ASPIRIN. [Suspect]
     Active Substance: ASPIRIN
     Indication: PROPHYLAXIS
     Dosage: THROUGHOUT CYCLE
     Route: 065
  2. DOXORUBICIN [Suspect]
     Active Substance: DOXORUBICIN
     Indication: DIFFUSE LARGE B-CELL LYMPHOMA
     Dosage: DAY 1
     Route: 065
  3. CYCLOPHOSPHAMIDE FOR INJECTION, USP [Suspect]
     Active Substance: CYCLOPHOSPHAMIDE
     Indication: DIFFUSE LARGE B-CELL LYMPHOMA
     Dosage: DAY 1
     Route: 065
  4. PREDNISONE. [Suspect]
     Active Substance: PREDNISONE
     Indication: DIFFUSE LARGE B-CELL LYMPHOMA
     Dosage: DAY 1 TO DAY 5
     Route: 065
  5. PEGFILGRASTIM [Suspect]
     Active Substance: PEGFILGRASTIM
     Indication: PROPHYLAXIS
     Dosage: DAY 2
     Route: 058
  6. LENALIDOMIDE [Suspect]
     Active Substance: LENALIDOMIDE
     Indication: DIFFUSE LARGE B-CELL LYMPHOMA
     Dosage: DAY 1 TO 10
     Route: 048
  7. RITUXIMAB [Suspect]
     Active Substance: RITUXIMAB
     Indication: DIFFUSE LARGE B-CELL LYMPHOMA
     Dosage: DAY 1
     Route: 065
  8. VINCRISTINE [Suspect]
     Active Substance: VINCRISTINE
     Indication: DIFFUSE LARGE B-CELL LYMPHOMA
     Dosage: (CAPPED AT 2.0 MG) DAY 1
     Route: 065

REACTIONS (4)
  - Metastases to gastrointestinal tract [Fatal]
  - Diffuse large B-cell lymphoma [Fatal]
  - Gastrointestinal perforation [Fatal]
  - Gastrointestinal toxicity [Fatal]
